FAERS Safety Report 9769720 (Version 2)
Quarter: 2014Q2

REPORT INFORMATION
  Report Type: Spontaneous
  Country: US (occurrence: None)
  Receive Date: 20131216
  Receipt Date: 20140401
  Transmission Date: 20141212
  Serious: Yes (Other)
  Sender: FDA-Public Use
  Company Number: 2013-US-004112

PATIENT
  Age: 11 Year
  Sex: Female

DRUGS (7)
  1. XYREM [Suspect]
     Indication: INSOMNIA
     Route: 048
     Dates: start: 201311, end: 20131202
  2. ONFI (CLOBAZAM) [Concomitant]
  3. ZONISAMIDE (ZONISAMIDE) UNKNOWN [Concomitant]
  4. STRATTERA (ATOMOXETINE HYDROCHLORIDE) CAPSULE [Concomitant]
  5. RISPERDAL [Concomitant]
  6. KEPPRA (LEVETIRACETAM) [Concomitant]
  7. DIASTAT (DIAZEPAM) [Concomitant]

REACTIONS (3)
  - Convulsion [None]
  - Malaise [None]
  - Off label use [None]
